FAERS Safety Report 12663005 (Version 4)
Quarter: 2016Q3

REPORT INFORMATION
  Report Type: Spontaneous
  Country: US (occurrence: US)
  Receive Date: 20160818
  Receipt Date: 20160927
  Transmission Date: 20161109
  Serious: Yes (Life-Threatening, Other)
  Sender: FDA-Public Use
  Company Number: US-CIPLA LTD.-2016US17620

PATIENT

DRUGS (9)
  1. MUPIROCIN. [Concomitant]
     Active Substance: MUPIROCIN
     Indication: STAPHYLOCOCCAL INFECTION
     Dosage: UNK, APPLIED TOPICALLY THREE TIMES DAILY
     Route: 061
     Dates: start: 201601, end: 201608
  2. TIZANIDINE. [Concomitant]
     Active Substance: TIZANIDINE
     Indication: POLLAKIURIA
     Dosage: 4 MG, 2-3 TIMES DAILY BY MOUTH
     Route: 048
     Dates: start: 2011
  3. LEVOFLOXACIN. [Concomitant]
     Active Substance: LEVOFLOXACIN
     Indication: STAPHYLOCOCCAL INFECTION
     Dosage: 500 MG, UNK
     Route: 048
     Dates: start: 201601, end: 201602
  4. NORCO [Concomitant]
     Active Substance: ACETAMINOPHEN\HYDROCODONE BITARTRATE
     Indication: PAIN
     Dosage: ONE 10/325 MG TABLET EVERY 4 HOURS
     Route: 065
     Dates: start: 2006
  5. OXYCONTIN [Concomitant]
     Active Substance: OXYCODONE HYDROCHLORIDE
     Indication: PAIN
     Dosage: 20 MG, BID
     Route: 048
     Dates: start: 2014
  6. OMEPRAZOLE. [Concomitant]
     Active Substance: OMEPRAZOLE
     Indication: GASTROOESOPHAGEAL REFLUX DISEASE
     Dosage: 20 MG, BID
     Route: 048
     Dates: start: 2006
  7. HYDROXYZINE [Suspect]
     Active Substance: HYDROXYZINE\HYDROXYZINE HYDROCHLORIDE
     Indication: BLADDER PAIN
     Dosage: 25 MG, BID
     Route: 048
  8. DOXYCYCLINE HYCLATE CAPSULES [Concomitant]
     Active Substance: DOXYCYCLINE HYCLATE
     Indication: STAPHYLOCOCCAL INFECTION
     Dosage: 500 MG, BID
     Route: 048
     Dates: start: 201601, end: 201602
  9. XYLOCAINE COCKTAIL [Concomitant]
     Indication: BLADDER PAIN
     Dosage: LIQUID XYLOCAINE, HEPARIN, AND ANOTHER UNKNOWN DRUG, UNKNOWN STRENGTHS, MIXED INTO A ^COCKTAIL^ INFU
     Route: 065
     Dates: start: 1994

REACTIONS (7)
  - Heart rate increased [Recovered/Resolved]
  - Dyspnoea [Recovered/Resolved]
  - Swollen tongue [Recovered/Resolved]
  - Nausea [Unknown]
  - Loss of consciousness [Recovered/Resolved]
  - Erythema [Recovered/Resolved]
  - Pharyngeal oedema [Recovered/Resolved]
